FAERS Safety Report 14672164 (Version 1)
Quarter: 2018Q1

REPORT INFORMATION
  Report Type: Spontaneous
  Country: RU (occurrence: RU)
  Receive Date: 20180323
  Receipt Date: 20180323
  Transmission Date: 20180509
  Serious: Yes (Hospitalization, Other)
  Sender: FDA-Public Use
  Company Number: RU-ASTRAZENECA-2018SE34025

PATIENT
  Age: 77 Year
  Sex: Female
  Weight: 58 kg

DRUGS (8)
  1. METOPROLOL. [Concomitant]
     Active Substance: METOPROLOL
  2. DIGOXIN. [Concomitant]
     Active Substance: DIGOXIN
     Dates: start: 201712
  3. BRILINTA [Suspect]
     Active Substance: TICAGRELOR
     Indication: MYOCARDIAL INFARCTION
     Dosage: 90 MG PER OS TWICE A DAY
     Route: 048
     Dates: start: 201612
  4. FUROSEMIDE. [Concomitant]
     Active Substance: FUROSEMIDE
  5. VEROSPIRON [Concomitant]
     Active Substance: SPIRONOLACTONE
  6. ROSUVASTATIN. [Concomitant]
     Active Substance: ROSUVASTATIN
  7. CARDIOMAGNYL [Concomitant]
     Active Substance: ASPIRIN\MAGNESIUM HYDROXIDE
  8. OMEPRAZOLE. [Concomitant]
     Active Substance: OMEPRAZOLE

REACTIONS (4)
  - Off label use [Not Recovered/Not Resolved]
  - Product use issue [Not Recovered/Not Resolved]
  - Pulmonary oedema [Recovered/Resolved]
  - Myocardial infarction [Recovered/Resolved]

NARRATIVE: CASE EVENT DATE: 201705
